FAERS Safety Report 24759058 (Version 1)
Quarter: 2024Q4

REPORT INFORMATION
  Report Type: Spontaneous
  Country: US (occurrence: None)
  Receive Date: 20241219
  Receipt Date: 20241219
  Transmission Date: 20250115
  Serious: Yes (Hospitalization)
  Sender: Public
  Company Number: None

PATIENT
  Age: 39 Year
  Sex: Female
  Weight: 95.4 kg

DRUGS (2)
  1. REGADENOSON [Suspect]
     Active Substance: REGADENOSON
     Dates: start: 20240812
  2. BYSTOLIC [Concomitant]
     Active Substance: NEBIVOLOL HYDROCHLORIDE

REACTIONS (10)
  - Facial asymmetry [None]
  - Neuromyopathy [None]
  - Hypercoagulation [None]
  - Lipids increased [None]
  - Facial spasm [None]
  - Eye movement disorder [None]
  - Gait disturbance [None]
  - Speech disorder [None]
  - Cognitive disorder [None]
  - Activities of daily living assessment [None]

NARRATIVE: CASE EVENT DATE: 20240813
